FAERS Safety Report 16725828 (Version 1)
Quarter: 2019Q3

REPORT INFORMATION
  Report Type: Spontaneous
  Country: US (occurrence: US)
  Receive Date: 20190821
  Receipt Date: 20190821
  Transmission Date: 20191005
  Serious: Yes (Other)
  Sender: FDA-Public Use
  Company Number: US-ABBVIE-19S-163-2760232-00

PATIENT
  Sex: Female

DRUGS (1)
  1. LUPRON [Suspect]
     Active Substance: LEUPROLIDE ACETATE
     Indication: PRODUCT USED FOR UNKNOWN INDICATION
     Dosage: UNKNOWN
     Route: 050

REACTIONS (9)
  - Pain [Not Recovered/Not Resolved]
  - Frustration tolerance decreased [Unknown]
  - Pneumonia [Not Recovered/Not Resolved]
  - Emotional distress [Unknown]
  - Pancreatic disorder [Not Recovered/Not Resolved]
  - Diabetes mellitus [Not Recovered/Not Resolved]
  - Malaise [Unknown]
  - Uveitis [Not Recovered/Not Resolved]
  - Vaginal disorder [Not Recovered/Not Resolved]
